FAERS Safety Report 7016718-0 (Version None)
Quarter: 2010Q3

REPORT INFORMATION
  Report Type: 
  Country: None (occurrence: None)
  Receive Date: 20100927
  Receipt Date: 20100920
  Transmission Date: 20110219
  Serious: Yes (Other)
  Sender: FDA-Public Use
  Company Number: PL-ROCHE-728774

PATIENT
  Weight: 1 kg

DRUGS (9)
  1. TAMIFLU [Suspect]
  2. UNASYN [Concomitant]
  3. NYSTATIN [Concomitant]
     Dosage: ROUTE: INTRAVAGINALLY
  4. METRONIDAZOLE [Concomitant]
  5. ZYVOX [Concomitant]
  6. CIPROFLOXACIN [Concomitant]
  7. VFEND [Concomitant]
  8. TARGOCID [Concomitant]
  9. TYGACIL [Concomitant]

REACTIONS (1)
  - INTRA-UTERINE DEATH [None]
